FAERS Safety Report 5235942-0 (Version None)
Quarter: 2007Q1

REPORT INFORMATION
  Report Type: 
  Country: None (occurrence: None)
  Receive Date: 20061208
  Receipt Date: 20060120
  Transmission Date: 20070707
  Serious: Yes (Other)
  Sender: FDA-Public Use
  Company Number: 2006UW00290

PATIENT
  Age: 75 Year
  Sex: Male

DRUGS (5)
  1. CRESTOR [Suspect]
     Indication: BLOOD CHOLESTEROL INCREASED
     Dosage: 10 MG QD PO
     Route: 048
     Dates: start: 20051001
  2. LISINOPRIL [Concomitant]
  3. NIASPAN [Concomitant]
  4. IMDUR [Concomitant]
  5. NEURONTIN [Concomitant]

REACTIONS (1)
  - TRIGEMINAL NEURALGIA [None]
